FAERS Safety Report 14716951 (Version 3)
Quarter: 2019Q1

REPORT INFORMATION
  Report Type: Spontaneous
  Country: US (occurrence: US)
  Receive Date: 20180404
  Receipt Date: 20190205
  Transmission Date: 20190417
  Serious: Yes (Death, Other)
  Sender: FDA-Public Use
  Company Number: US-SA-2018SA095871

PATIENT
  Age: 43 Year
  Sex: Female

DRUGS (12)
  1. OXYBUTYNIN CHLORIDE. [Concomitant]
     Active Substance: OXYBUTYNIN CHLORIDE
     Dosage: UNK UNK,UNK
     Route: 065
  2. CIPROFLOXACIN HYDROCHLORIDE. [Concomitant]
     Active Substance: CIPROFLOXACIN HYDROCHLORIDE
     Dosage: UNK UNK,UNK
     Route: 065
  3. AUBAGIO [Suspect]
     Active Substance: TERIFLUNOMIDE
     Dosage: 7 MG,QD
     Route: 048
  4. POTASSIUM [Concomitant]
     Active Substance: POTASSIUM
     Dosage: UNK UNK,UNK
     Route: 065
  5. POLYETHYLENE GLYCOL [Concomitant]
     Active Substance: POLYETHYLENE GLYCOLS
     Dosage: UNK UNK,UNK
     Route: 065
  6. AUBAGIO [Suspect]
     Active Substance: TERIFLUNOMIDE
     Dosage: 14 MG, QD
     Route: 048
     Dates: start: 20151112
  7. DIAZEPAM. [Concomitant]
     Active Substance: DIAZEPAM
     Dosage: UNK UNK,UNK
     Route: 065
  8. IBUPROFEN. [Concomitant]
     Active Substance: IBUPROFEN
     Dosage: UNK UNK,UNK
     Route: 065
  9. PHENOXYMETHYLPENICILLIN [Concomitant]
     Active Substance: PENICILLIN V
     Dosage: UNK UNK,UNK
     Route: 065
  10. HYDROCODONE [Concomitant]
     Active Substance: HYDROCODONE
     Dosage: UNK UNK,UNK
     Route: 065
  11. HYDROZOLE [Concomitant]
     Active Substance: CLOTRIMAZOLE\HYDROCORTISONE
     Dosage: UNK UNK,UNK
     Route: 065
  12. LYRICA [Concomitant]
     Active Substance: PREGABALIN
     Dosage: UNK UNK,UNK
     Route: 065

REACTIONS (1)
  - Death [Fatal]

NARRATIVE: CASE EVENT DATE: 20180322
